FAERS Safety Report 10120841 (Version 4)
Quarter: 2014Q2

REPORT INFORMATION
  Report Type: Spontaneous
  Country: JP (occurrence: JP)
  Receive Date: 20140425
  Receipt Date: 20140612
  Transmission Date: 20141212
  Serious: Yes (Life-Threatening)
  Sender: FDA-Public Use
  Company Number: JP-BRISTOL-MYERS SQUIBB COMPANY-20665402

PATIENT
  Age: 69 Year
  Sex: Female
  Weight: 37.9 kg

DRUGS (18)
  1. ELIQUIS [Suspect]
     Indication: CEREBROVASCULAR ACCIDENT PROPHYLAXIS
     Dosage: TAB?2.5MG 2/DAY
     Route: 048
     Dates: start: 20140407, end: 20140414
  2. FOIPAN [Concomitant]
     Route: 048
  3. FEBUXOSTAT [Concomitant]
     Route: 048
  4. ATELEC [Concomitant]
     Route: 048
  5. ARTIST [Concomitant]
     Route: 048
  6. OLMETEC [Concomitant]
     Route: 048
  7. TOFRANIL [Concomitant]
     Route: 048
  8. DOGMATYL [Concomitant]
     Route: 048
  9. THYRADIN S [Concomitant]
     Route: 048
  10. TAKEPRON [Concomitant]
     Route: 048
  11. URSO [Concomitant]
     Dosage: TABLET
     Route: 048
  12. LENDORMIN [Concomitant]
     Dosage: TABLET
     Route: 048
  13. LOXONIN [Concomitant]
     Dosage: TABLET
     Route: 048
  14. BASEN [Concomitant]
     Dosage: TABLET
     Route: 048
  15. YOKUKANSAN [Concomitant]
     Route: 048
  16. KAKKONTO [Concomitant]
     Route: 048
  17. RIKKUNSHI-TO [Concomitant]
     Route: 048
  18. EVISTA [Concomitant]
     Dosage: TABLET
     Route: 048

REACTIONS (4)
  - Loss of consciousness [Recovered/Resolved]
  - Cardio-respiratory arrest [Recovered/Resolved]
  - Bradycardia [Recovered/Resolved]
  - Decreased appetite [Recovering/Resolving]
